FAERS Safety Report 6062394-3 (Version None)
Quarter: 2009Q1

REPORT INFORMATION
  Report Type: 
  Country: None (occurrence: None)
  Receive Date: 20090203
  Receipt Date: 20090126
  Transmission Date: 20090719
  Serious: Yes (Disabling)
  Sender: FDA-Public Use
  Company Number: JP-JNJFOC-20090200206

PATIENT
  Age: 39 Year
  Sex: Female

DRUGS (1)
  1. CRAVIT [Suspect]
     Indication: PELVIC ABSCESS
     Route: 048

REACTIONS (2)
  - EOSINOPHILIA [None]
  - NEUROGENIC BLADDER [None]
